FAERS Safety Report 5848505-0 (Version None)
Quarter: 2008Q3

REPORT INFORMATION
  Report Type: 
  Country: None (occurrence: None)
  Receive Date: 20080818
  Receipt Date: 20080623
  Transmission Date: 20090109
  Serious: No
  Sender: FDA-Public Use
  Company Number: US-BAYER-200812832BCC

PATIENT
  Age: 78 Year
  Sex: Male
  Weight: 77 kg

DRUGS (5)
  1. ALEVE (CAPLET) [Suspect]
     Indication: MUSCULOSKELETAL PAIN
     Dosage: TOTAL DAILY DOSE: 220 MG  UNIT DOSE: 220 MG
     Route: 048
     Dates: start: 20080621
  2. AMLODIPINE BESYLATE [Concomitant]
     Route: 065
  3. LEVOXYL [Concomitant]
     Route: 065
  4. ASPIRIN [Concomitant]
  5. CHLOROPHYLL [Concomitant]
     Route: 065

REACTIONS (1)
  - MUSCULOSKELETAL PAIN [None]
